FAERS Safety Report 5485716-0 (Version None)
Quarter: 2007Q4

REPORT INFORMATION
  Report Type: 
  Country: None (occurrence: None)
  Receive Date: 20071015
  Receipt Date: 20071009
  Transmission Date: 20080405
  Serious: Yes (Other)
  Sender: FDA-Public Use
  Company Number: US-MERCK-0705USA02894

PATIENT
  Age: 39 Year
  Sex: Female
  Weight: 63 kg

DRUGS (6)
  1. SINGULAIR [Suspect]
     Indication: ASTHMA
     Route: 048
     Dates: start: 20061101, end: 20061101
  2. SINGULAIR [Suspect]
     Route: 048
     Dates: start: 20061101, end: 20061101
  3. SINGULAIR [Suspect]
     Indication: SEASONAL ALLERGY
     Route: 048
     Dates: start: 20061101, end: 20061101
  4. SINGULAIR [Suspect]
     Route: 048
     Dates: start: 20061101, end: 20061101
  5. NASONEX [Concomitant]
     Route: 065
  6. ANTIMICROBIAL (UNSPECIFIED) [Concomitant]
     Route: 065

REACTIONS (5)
  - DRUG HYPERSENSITIVITY [None]
  - FORMICATION [None]
  - RESTLESS LEGS SYNDROME [None]
  - SECONDARY HYPOTHYROIDISM [None]
  - SYSTEMIC LUPUS ERYTHEMATOSUS [None]
